FAERS Safety Report 12083960 (Version 1)
Quarter: 2016Q1

REPORT INFORMATION
  Report Type: Spontaneous
  Country: GB (occurrence: GB)
  Receive Date: 20160217
  Receipt Date: 20160217
  Transmission Date: 20160526
  Serious: Yes (Other)
  Sender: FDA-Public Use
  Company Number: GB-PFIZER INC-2016083955

PATIENT
  Sex: Male

DRUGS (5)
  1. CRIZOTINIB [Suspect]
     Active Substance: CRIZOTINIB
     Dosage: 200 MG, 2X/DAY
     Route: 065
  2. CRIZOTINIB [Suspect]
     Active Substance: CRIZOTINIB
     Dosage: 200 MG, 1X/DAY
     Route: 065
  3. ALIMTA [Suspect]
     Active Substance: PEMETREXED DISODIUM
     Indication: NEOPLASM MALIGNANT
     Dosage: UNK
     Route: 065
     Dates: start: 201304
  4. CISPLATIN. [Concomitant]
     Active Substance: CISPLATIN
     Dosage: UNK
     Route: 065
  5. CRIZOTINIB [Suspect]
     Active Substance: CRIZOTINIB
     Dosage: UNK
     Route: 065
     Dates: start: 201410

REACTIONS (7)
  - Pleural effusion [Recovered/Resolved]
  - Pericardial effusion [Unknown]
  - Transaminases increased [Unknown]
  - Diverticulum intestinal [Unknown]
  - Neoplasm malignant [Unknown]
  - Lacunar infarction [Unknown]
  - Disease progression [Unknown]

NARRATIVE: CASE EVENT DATE: 20130516
